FAERS Safety Report 20245382 (Version 4)
Quarter: 2022Q1

REPORT INFORMATION
  Report Type: Spontaneous
  Country: CA (occurrence: CA)
  Receive Date: 20211229
  Receipt Date: 20220124
  Transmission Date: 20220423
  Serious: Yes (Other)
  Sender: FDA-Public Use
  Company Number: CA-PFIZER INC-202101362447

PATIENT
  Age: 48 Year
  Sex: Female
  Weight: 57.596 kg

DRUGS (5)
  1. XELJANZ [Suspect]
     Active Substance: TOFACITINIB CITRATE
     Indication: Colitis ulcerative
     Dosage: 10 MG, 2X/DAY
     Route: 048
     Dates: start: 20210615, end: 202201
  2. XELJANZ [Suspect]
     Active Substance: TOFACITINIB CITRATE
     Dosage: 1 DF
     Route: 048
     Dates: start: 202106
  3. PREDNISONE [Concomitant]
     Active Substance: PREDNISONE
     Dosage: UNKNOWN
  4. PREDNISONE [Concomitant]
     Active Substance: PREDNISONE
     Dosage: 40 MG, 2 WEEKS TAPER
  5. PREDNISONE [Concomitant]
     Active Substance: PREDNISONE
     Dosage: 30 MG

REACTIONS (6)
  - Colitis ulcerative [Unknown]
  - Enterocolitis [Not Recovered/Not Resolved]
  - Drug ineffective [Unknown]
  - Nasopharyngitis [Not Recovered/Not Resolved]
  - Arthralgia [Unknown]
  - Fistula [Unknown]

NARRATIVE: CASE EVENT DATE: 20211001
